FAERS Safety Report 20057901 (Version 2)
Quarter: 2021Q4

REPORT INFORMATION
  Report Type: Spontaneous
  Country: US (occurrence: None)
  Receive Date: 20211111
  Receipt Date: 20211205
  Transmission Date: 20220303
  Serious: No
  Sender: FDA-Public Use
  Company Number: 2021A782074

PATIENT
  Age: 1029 Month
  Sex: Male
  Weight: 94.3 kg

DRUGS (1)
  1. LOKELMA [Suspect]
     Active Substance: SODIUM ZIRCONIUM CYCLOSILICATE
     Indication: Blood potassium increased
     Route: 048
     Dates: start: 202109

REACTIONS (2)
  - Oedema peripheral [Recovered/Resolved]
  - Product contamination physical [Unknown]

NARRATIVE: CASE EVENT DATE: 20210901
